FAERS Safety Report 6424860-8 (Version None)
Quarter: 2009Q4

REPORT INFORMATION
  Report Type: 
  Country: None (occurrence: None)
  Receive Date: 20091029
  Receipt Date: 20091013
  Transmission Date: 20100525
  Serious: Yes (Other)
  Sender: FDA-Public Use
  Company Number: AVE_01033_2009

PATIENT
  Age: 63 Year
  Sex: Female

DRUGS (7)
  1. CLONIDINE [Suspect]
     Indication: HYPERTENSION
     Dosage: (0.4 MG QD, VIA TWO 1/WEEKLY PATCHES TRANSDERMAL
     Route: 062
     Dates: start: 20090906
  2. CATAPRES-TTS-1 [Concomitant]
  3. CLONIDINE [Concomitant]
  4. LIPITOR [Concomitant]
  5. ZOLOFT [Concomitant]
  6. VITAMINS NOS [Concomitant]
  7. MINERAL TAB [Concomitant]

REACTIONS (5)
  - BLOOD PRESSURE INCREASED [None]
  - PRODUCT ADHESION ISSUE [None]
  - PRODUCT SUBSTITUTION ISSUE [None]
  - WITHDRAWAL SYNDROME [None]
  - WRONG TECHNIQUE IN DRUG USAGE PROCESS [None]
